FAERS Safety Report 7754707-9 (Version None)
Quarter: 2011Q3

REPORT INFORMATION
  Report Type: 
  Country: None (occurrence: None)
  Receive Date: 20110915
  Receipt Date: 20110901
  Transmission Date: 20111222
  Serious: Yes (Hospitalization, Other)
  Sender: FDA-Public Use
  Company Number: PHHY2011BR78525

PATIENT
  Sex: Male

DRUGS (2)
  1. EXFORGE HCT [Suspect]
     Dosage: 2 DF (160/5/12.5 MG), DAILY
  2. EXFORGE HCT [Suspect]
     Indication: HYPERTENSION
     Dosage: 1 DF(160/5/ 12.5 MG), DAILY

REACTIONS (4)
  - NERVOUSNESS [None]
  - BENIGN NEOPLASM OF URETER [None]
  - ANXIETY [None]
  - BLOOD PRESSURE INADEQUATELY CONTROLLED [None]
